FAERS Safety Report 11519860 (Version 1)
Quarter: 2015Q3

REPORT INFORMATION
  Report Type: Spontaneous
  Country: US (occurrence: US)
  Receive Date: 20150918
  Receipt Date: 20150918
  Transmission Date: 20151125
  Serious: No
  Sender: FDA-Public Use
  Company Number: US-GLENMARK PHARMACEUTICALS INC, USA.-2015GMK017950

PATIENT

DRUGS (4)
  1. LEUPROLIDE ACETATE. [Suspect]
     Active Substance: LEUPROLIDE ACETATE
     Indication: ENDOMETRIOSIS
     Dosage: UNK, PER 3 MONTHS
     Route: 051
     Dates: start: 20150603
  2. NORETHINDRONE ACETATE TABLETS [Suspect]
     Active Substance: NORETHINDRONE ACETATE
     Indication: ENDOMETRIOSIS
     Dosage: UNK UNK, QD
     Route: 048
     Dates: start: 20150603
  3. NORETHINDRONE ACETATE TABLETS [Suspect]
     Active Substance: NORETHINDRONE ACETATE
     Indication: UTERINE LEIOMYOMA
  4. LEUPROLIDE ACETATE. [Suspect]
     Active Substance: LEUPROLIDE ACETATE
     Indication: UTERINE LEIOMYOMA

REACTIONS (4)
  - Menstrual disorder [Unknown]
  - Pelvic pain [Not Recovered/Not Resolved]
  - Vaginal haemorrhage [Not Recovered/Not Resolved]
  - Off label use [Unknown]

NARRATIVE: CASE EVENT DATE: 20150614
